FAERS Safety Report 5844912-0 (Version None)
Quarter: 2008Q3

REPORT INFORMATION
  Report Type: 
  Country: None (occurrence: None)
  Receive Date: 20080814
  Receipt Date: 20080807
  Transmission Date: 20090109
  Serious: Yes (Hospitalization)
  Sender: FDA-Public Use
  Company Number: US-KINGPHARMUSA00001-K200800925

PATIENT

DRUGS (6)
  1. ALTACE [Suspect]
     Indication: HYPERTENSION
     Dosage: 1.25 MG, QD
     Route: 048
     Dates: start: 20080201
  2. INEXIUM                            /01479302/ [Concomitant]
     Dosage: 40 MG, UNK
     Route: 048
     Dates: start: 20080101
  3. LASIX [Concomitant]
     Indication: HYPERTENSION
     Dosage: 20 MG, UNK
     Route: 048
     Dates: start: 20071201
  4. LOXEN [Concomitant]
     Indication: HYPERTENSION
     Dosage: 20 MG, UNK
     Route: 048
  5. TAHOR [Concomitant]
     Indication: HYPERCHOLESTEROLAEMIA
     Dosage: 10 MG, UNK
     Route: 048
     Dates: start: 20080101
  6. CALCIPARINE [Concomitant]
     Dosage: 10000 IU, UNK
     Route: 058

REACTIONS (7)
  - CHOLESTASIS [None]
  - DIARRHOEA [None]
  - HEPATOMEGALY [None]
  - LIVER DISORDER [None]
  - RENAL FAILURE ACUTE [None]
  - SEPSIS [None]
  - URINARY TRACT INFECTION BACTERIAL [None]
